FAERS Safety Report 5078020-6 (Version None)
Quarter: 2006Q3

REPORT INFORMATION
  Report Type: 
  Country: None (occurrence: None)
  Receive Date: 20060720
  Receipt Date: 20060516
  Transmission Date: 20061208
  Serious: Yes (Hospitalization, Other)
  Sender: FDA-Public Use
  Company Number: 2005130950

PATIENT
  Age: 65 Year
  Sex: Female
  Weight: 125.6464 kg

DRUGS (2)
  1. CELEBREX [Suspect]
     Indication: ARTHRITIS
     Dosage: 200 MG (100 MG, 2 IN 1 D), UNKNOWN
     Dates: start: 19990901
  2. CELEBREX [Suspect]
     Indication: PAIN
     Dosage: 200 MG (100 MG, 2 IN 1 D), UNKNOWN
     Dates: start: 19990901

REACTIONS (1)
  - CEREBROVASCULAR ACCIDENT [None]
